FAERS Safety Report 6188779-2 (Version None)
Quarter: 2009Q2

REPORT INFORMATION
  Report Type: 
  Country: None (occurrence: None)
  Receive Date: 20090513
  Receipt Date: 20090401
  Transmission Date: 20091009
  Serious: Yes (Hospitalization)
  Sender: FDA-Public Use
  Company Number: IT-MERCK-0904ITA00002

PATIENT
  Age: 69 Year
  Sex: Male

DRUGS (3)
  1. SINGULAIR [Suspect]
     Indication: ASTHMA
     Route: 048
     Dates: start: 20000101, end: 20060101
  2. AZATHIOPRINE [Suspect]
     Indication: MALIGNANT MELANOMA
     Route: 065
  3. AZATHIOPRINE [Suspect]
     Indication: ALLERGIC GRANULOMATOUS ANGIITIS
     Route: 065

REACTIONS (3)
  - ALLERGIC GRANULOMATOUS ANGIITIS [None]
  - LIVER INJURY [None]
  - MALIGNANT MELANOMA [None]
